FAERS Safety Report 9150007 (Version 1)
Quarter: 2013Q1

REPORT INFORMATION
  Report Type: Spontaneous
  Country: US (occurrence: None)
  Receive Date: 20130228
  Receipt Date: 20130228
  Transmission Date: 20140127
  Serious: Yes (Hospitalization)
  Sender: FDA-Public Use
  Company Number: None

PATIENT
  Age: 66 Year
  Sex: Male
  Weight: 104.4 kg

DRUGS (2)
  1. WARFARIN [Suspect]
     Route: 048
  2. WARFARIN [Suspect]
     Route: 048

REACTIONS (6)
  - Retroperitoneal haemorrhage [None]
  - Abdominal pain [None]
  - Pleuritic pain [None]
  - Chest pain [None]
  - Haemoglobin decreased [None]
  - Adrenal disorder [None]
